FAERS Safety Report 5528842-X (Version None)
Quarter: 2007Q4

REPORT INFORMATION
  Report Type: 
  Country: None (occurrence: None)
  Receive Date: 20071129
  Receipt Date: 20071122
  Transmission Date: 20080405
  Serious: Yes (Hospitalization)
  Sender: FDA-Public Use
  Company Number: FR-BRACCO-BRO-011820

PATIENT
  Sex: Female
  Weight: 75 kg

DRUGS (3)
  1. IOPAMIRON [Suspect]
     Indication: ARTHRALGIA
     Route: 014
     Dates: start: 20070605, end: 20070605
  2. IOPAMIRON [Suspect]
     Route: 014
     Dates: start: 20070605, end: 20070605
  3. BETADINE                           /00080001/ [Concomitant]
     Route: 050
     Dates: start: 20070605, end: 20070605

REACTIONS (2)
  - ARTHRALGIA [None]
  - ARTHRITIS BACTERIAL [None]
